FAERS Safety Report 19306605 (Version 1)
Quarter: 2021Q2

REPORT INFORMATION
  Report Type: Spontaneous
  Country: JP (occurrence: JP)
  Receive Date: 20210526
  Receipt Date: 20210526
  Transmission Date: 20210717
  Serious: Yes (Other)
  Sender: FDA-Public Use
  Company Number: JP-TEVA-2021-JP-1914828

PATIENT
  Age: 67 Year
  Sex: Female

DRUGS (10)
  1. DEXAMETHASONE SODIUM PHOSPHATE. [Concomitant]
     Active Substance: DEXAMETHASONE SODIUM PHOSPHATE
     Indication: ALLERGY PROPHYLAXIS
     Dosage: ADMINISTERED PRIOR TO PANITUMUMAB
     Route: 065
  2. CHLORPHENIRAMINE MALEATE. [Concomitant]
     Active Substance: CHLORPHENIRAMINE MALEATE
     Indication: ALLERGY PROPHYLAXIS
     Route: 065
  3. DEXAMETHASONE SODIUM PHOSPHATE. [Concomitant]
     Active Substance: DEXAMETHASONE SODIUM PHOSPHATE
     Dosage: ADMINISTERED PRIOR TO CETUXIMAB
     Route: 065
  4. CETUXIMAB. [Suspect]
     Active Substance: CETUXIMAB
     Indication: RECTAL CANCER
     Dosage: INFUSED AT THE RATE OF 2.7 MG/MINUTE
     Route: 050
  5. RESTAMINE CALCIUM [Concomitant]
     Indication: ALLERGY PROPHYLAXIS
     Dosage: ADMINISTERED PRIOR TO CETUXIMAB
     Route: 065
  6. OXALIPLATIN. [Suspect]
     Active Substance: OXALIPLATIN
     Indication: RECTAL CANCER
     Dosage: MFOLFOX6 REGIMEN
     Route: 065
  7. PANITUMUMAB [Suspect]
     Active Substance: PANITUMUMAB
     Indication: RECTAL CANCER
     Dosage: DRIP
     Route: 041
  8. LEUCOVORIN. [Suspect]
     Active Substance: LEUCOVORIN
     Indication: RECTAL CANCER
     Dosage: MFOLFOX6 REGIMEN
     Route: 065
  9. 5?FLUOROURACIL [Suspect]
     Active Substance: FLUOROURACIL
     Indication: RECTAL CANCER
     Dosage: MFOLFOX6 REGIMEN
     Route: 065
  10. FAMOTIDINE. [Concomitant]
     Active Substance: FAMOTIDINE
     Indication: ALLERGY PROPHYLAXIS
     Dosage: ADMINISTERED PRIOR TO CETUXIMAB
     Route: 065

REACTIONS (7)
  - Neutropenia [Unknown]
  - Neuropathy peripheral [Unknown]
  - Thrombocytopenia [Unknown]
  - Infusion related reaction [Recovered/Resolved]
  - Dermatitis [Unknown]
  - Dysgeusia [Unknown]
  - Anaemia [Unknown]
